FAERS Safety Report 5824638-X (Version None)
Quarter: 2008Q3

REPORT INFORMATION
  Report Type: 
  Country: None (occurrence: None)
  Receive Date: 20080721
  Receipt Date: 20080707
  Transmission Date: 20090109
  Serious: Yes (Hospitalization)
  Sender: FDA-Public Use
  Company Number: GXKR2008BE05562

PATIENT
  Age: 52 Year
  Sex: Female

DRUGS (6)
  1. LORAZEPAM [Suspect]
     Indication: SLEEP DISORDER
     Dosage: 2.5 MG, QD WHEN
  2. ALPRAZOLAM [Suspect]
     Indication: SLEEP DISORDER
     Dosage: 0.5 MG, QD, ORAL
     Route: 048
  3. RISPERIDONE [Suspect]
     Dosage: 2 MG, QD,
     Dates: end: 20050601
  4. TRAZODONE HCL [Suspect]
     Indication: DEPRESSION
     Dosage: 150 MG, QD,
  5. VENLAFAXINE HCL [Suspect]
     Indication: DEPRESSION
     Dosage: 75 MG, QD,
  6. SERTRALINE [Suspect]
     Indication: DEPRESSION
     Dosage: 20-40 MG, QD,
     Dates: start: 20020801

REACTIONS (5)
  - BLOOD PROLACTIN INCREASED [None]
  - CHEST PAIN [None]
  - OSTEOPOROSIS [None]
  - RESPIRATORY DISTRESS [None]
  - RIB FRACTURE [None]
